FAERS Safety Report 16182791 (Version 1)
Quarter: 2019Q2

REPORT INFORMATION
  Report Type: Spontaneous
  Country: US (occurrence: US)
  Receive Date: 20190411
  Receipt Date: 20190411
  Transmission Date: 20190711
  Serious: No
  Sender: FDA-Public Use
  Company Number: US-APOTEX-2019AP010350

PATIENT

DRUGS (1)
  1. DROSPIRENONE AND ETHINYL ESTRADIOL TABLETS, USP 3 MG / 0.03 MG [Suspect]
     Active Substance: DROSPIRENONE\ETHINYL ESTRADIOL
     Indication: PRODUCT USED FOR UNKNOWN INDICATION
     Dosage: UNK
     Route: 065

REACTIONS (3)
  - Acne [Unknown]
  - Hormone level abnormal [Unknown]
  - Fungal infection [Unknown]
